FAERS Safety Report 16737125 (Version 1)
Quarter: 2019Q3

REPORT INFORMATION
  Report Type: Report from Study
  Country: CA (occurrence: CA)
  Receive Date: 20190823
  Receipt Date: 20190823
  Transmission Date: 20191005
  Serious: Yes (Life-Threatening, Other)
  Sender: FDA-Public Use
  Company Number: PHHY2019CA036661

PATIENT
  Age: 73 Year
  Sex: Male

DRUGS (3)
  1. COSENTYX [Suspect]
     Active Substance: SECUKINUMAB
     Dosage: 300 MG, Q4W
     Route: 058
     Dates: start: 20180716
  2. COSENTYX [Suspect]
     Active Substance: SECUKINUMAB
     Indication: PSORIASIS
     Dosage: 300 MG, Q4W
     Route: 058
     Dates: start: 20180618, end: 20180709
  3. LYDERM [Concomitant]
     Indication: PRODUCT USED FOR UNKNOWN INDICATION
     Dosage: UNK
     Route: 065
     Dates: start: 20170221

REACTIONS (11)
  - Idiopathic pulmonary fibrosis [Recovering/Resolving]
  - Lung cancer metastatic [Not Recovered/Not Resolved]
  - Renal impairment [Unknown]
  - Emphysema [Unknown]
  - Benign neoplasm of adrenal gland [Unknown]
  - Tooth abscess [Recovered/Resolved]
  - Metastases to liver [Unknown]
  - Metastases to bone [Unknown]
  - Interstitial lung disease [Unknown]
  - Dyspnoea [Unknown]
  - Pulmonary mass [Unknown]

NARRATIVE: CASE EVENT DATE: 20181207
